FAERS Safety Report 26131481 (Version 1)
Quarter: 2025Q4

REPORT INFORMATION
  Report Type: Spontaneous
  Country: US (occurrence: None)
  Receive Date: 20251208
  Receipt Date: 20251208
  Transmission Date: 20260119
  Serious: No
  Sender: INCYTE
  Company Number: US-INCYTE CORPORATION-2025IN013403

PATIENT
  Age: 83 Year

DRUGS (1)
  1. JAKAFI [Suspect]
     Active Substance: RUXOLITINIB
     Indication: Polycythaemia vera
     Dosage: 10 MILLIGRAM, QOD

REACTIONS (1)
  - Off label use [Unknown]
